FAERS Safety Report 8395205-1 (Version None)
Quarter: 2012Q2

REPORT INFORMATION
  Report Type: 
  Country: None (occurrence: None)
  Receive Date: 20120524
  Receipt Date: 20120509
  Transmission Date: 20120825
  Serious: Yes (Other)
  Sender: FDA-Public Use
  Company Number: 2012P1023248

PATIENT
  Age: 59 Year
  Sex: Female

DRUGS (5)
  1. SERTRALINE HYDROCHLORIDE [Concomitant]
  2. CITALOPRAM HYDROBROMIDE [Concomitant]
  3. LEVOTHYROXINE SODIUM [Concomitant]
  4. LEXAPRO [Concomitant]
  5. PARNATE [Suspect]
     Indication: ANXIETY
     Dates: start: 19981019, end: 20020407

REACTIONS (4)
  - DRY MOUTH [None]
  - POOR DENTAL CONDITION [None]
  - DENTAL CARE [None]
  - TOOTH FRACTURE [None]
